FAERS Safety Report 19155956 (Version 5)
Quarter: 2021Q3

REPORT INFORMATION
  Report Type: Spontaneous
  Country: CZ (occurrence: CZ)
  Receive Date: 20210419
  Receipt Date: 20210916
  Transmission Date: 20211014
  Serious: Yes (Other)
  Sender: FDA-Public Use
  Company Number: NVSC2021CZ086217

PATIENT
  Age: 67 Year
  Sex: Male

DRUGS (12)
  1. PACLITAXEL. [Suspect]
     Active Substance: PACLITAXEL
     Indication: CHEMOTHERAPY
  2. CABAZITAXEL [Suspect]
     Active Substance: CABAZITAXEL
     Indication: DISEASE PROGRESSION
  3. DOCETAXEL. [Suspect]
     Active Substance: DOCETAXEL
     Indication: HORMONE-REFRACTORY PROSTATE CANCER
  4. CARBOPLATIN. [Suspect]
     Active Substance: CARBOPLATIN
     Indication: PROSTATE CANCER
     Dosage: UNK
     Route: 065
     Dates: start: 202011
  5. CABAZITAXEL [Suspect]
     Active Substance: CABAZITAXEL
     Indication: PROSTATE CANCER
     Dosage: UNK, QCY
     Route: 065
     Dates: start: 201409, end: 201505
  6. DOCETAXEL. [Suspect]
     Active Substance: DOCETAXEL
     Indication: PROSTATE CANCER
     Dosage: STANDARD DOSE, Q3W
     Route: 065
     Dates: start: 201312
  7. ENZALUTAMIDE [Concomitant]
     Active Substance: ENZALUTAMIDE
     Indication: DISEASE PROGRESSION
     Dosage: UNK
     Route: 065
     Dates: start: 2016
  8. PACLITAXEL. [Suspect]
     Active Substance: PACLITAXEL
     Indication: HORMONE-REFRACTORY PROSTATE CANCER
  9. CARBOPLATIN. [Suspect]
     Active Substance: CARBOPLATIN
     Indication: HORMONE-REFRACTORY PROSTATE CANCER
  10. PACLITAXEL. [Suspect]
     Active Substance: PACLITAXEL
     Indication: PROSTATE CANCER
     Dosage: UNK
     Route: 065
     Dates: start: 202011
  11. CARBOPLATIN. [Suspect]
     Active Substance: CARBOPLATIN
     Indication: CHEMOTHERAPY
  12. ENZALUTAMIDE [Concomitant]
     Active Substance: ENZALUTAMIDE
     Indication: PROSTATE CANCER
     Dosage: UNK UNK, QCY
     Route: 065
     Dates: start: 201509

REACTIONS (2)
  - Off label use [Unknown]
  - Neuropathy peripheral [Unknown]

NARRATIVE: CASE EVENT DATE: 2020
